FAERS Safety Report 5257265-6 (Version None)
Quarter: 2007Q1

REPORT INFORMATION
  Report Type: 
  Country: None (occurrence: None)
  Receive Date: 20070307
  Receipt Date: 20070302
  Transmission Date: 20070707
  Serious: Yes (Death, Other)
  Sender: FDA-Public Use
  Company Number: US-PURDUE-USA_2006_0025067

PATIENT
  Age: 41 Year
  Sex: Male

DRUGS (3)
  1. COCAINE [Suspect]
     Indication: DRUG ABUSER
     Dosage: UNK UNK, UNK
     Route: 065
  2. ALCOHOL [Suspect]
     Indication: ALCOHOL USE
     Dosage: UNK UNK, SEE TEXT
     Route: 048
  3. OXYCONTIN [Suspect]
     Indication: NECK PAIN
     Dosage: UNK UNK, UNK

REACTIONS (5)
  - AGGRESSION [None]
  - ELECTRIC SHOCK [None]
  - PAIN [None]
  - SUBSTANCE ABUSE [None]
  - UNRESPONSIVE TO STIMULI [None]
